FAERS Safety Report 11236493 (Version 3)
Quarter: 2015Q3

REPORT INFORMATION
  Report Type: Report from Study
  Country: CN (occurrence: CN)
  Receive Date: 20150702
  Receipt Date: 20150910
  Transmission Date: 20151125
  Serious: Yes (Death, Hospitalization, Disabling)
  Sender: FDA-Public Use
  Company Number: PHHO2015CN011187

PATIENT
  Age: 49 Year
  Sex: Female
  Weight: 46 kg

DRUGS (11)
  1. OXYCODONE [Concomitant]
     Active Substance: OXYCODONE
     Indication: PAIN PROPHYLAXIS
     Dosage: 20 MG, Q12H
     Route: 048
     Dates: start: 20150720
  2. CALTRATE +D [Concomitant]
     Indication: PROPHYLAXIS
     Dosage: 600 MG, QD
     Route: 048
     Dates: start: 20150720, end: 20150724
  3. MULTIPLE VITAMINS WITH MINERALS [Concomitant]
     Indication: PROPHYLAXIS
     Dosage: 1 DF, QD
     Route: 048
     Dates: start: 20150720, end: 20150724
  4. LACTULOSE. [Concomitant]
     Active Substance: LACTULOSE
     Indication: CONSTIPATION PROPHYLAXIS
     Dosage: 15 ML, TID
     Route: 048
     Dates: start: 20150722
  5. PHENOLPHTHALEIN [Concomitant]
     Active Substance: PHENOLPHTHALEIN
     Indication: CONSTIPATION PROPHYLAXIS
     Dosage: 200 MG, QD
     Route: 048
     Dates: start: 20150720, end: 20150724
  6. LDK378 [Suspect]
     Active Substance: CERITINIB
     Indication: NON-SMALL CELL LUNG CANCER
     Dosage: 750 MG, QD
     Route: 048
     Dates: start: 20141104, end: 20150711
  7. FUROSEMIDE. [Concomitant]
     Active Substance: FUROSEMIDE
     Indication: PROPHYLAXIS
     Dosage: 20 MG, QD
     Route: 042
     Dates: start: 20150722, end: 20150724
  8. SODIUM CHLORIDE. [Concomitant]
     Active Substance: SODIUM CHLORIDE
     Indication: BLOOD SODIUM DECREASED
     Dosage: 30 ML, QD
     Route: 042
     Dates: start: 20150721, end: 20150724
  9. CELECOXIB. [Concomitant]
     Active Substance: CELECOXIB
     Indication: PAIN PROPHYLAXIS
     Dosage: 200 MG, BID
     Route: 048
     Dates: start: 20150720
  10. RECOMBINANT HUMAN THROMBOPOIETIN [Concomitant]
     Indication: PLATELET COUNT DECREASED
     Dosage: 15000 U, QD
     Route: 058
     Dates: start: 20150720, end: 20150724
  11. HUMAN ALBUMIN [Concomitant]
     Active Substance: ALBUMIN (HUMAN)
     Indication: SUPPLEMENTATION THERAPY
     Dosage: 50 ML, QD (IV INJECTION)
     Route: 042
     Dates: start: 20150721, end: 20150724

REACTIONS (3)
  - Calculus ureteric [Not Recovered/Not Resolved]
  - Malignant neoplasm progression [Fatal]
  - Blood bilirubin increased [Not Recovered/Not Resolved]

NARRATIVE: CASE EVENT DATE: 20150617
